FAERS Safety Report 9480832 (Version 1)
Quarter: 2013Q3

REPORT INFORMATION
  Report Type: Spontaneous
  Country: US (occurrence: US)
  Receive Date: 20130828
  Receipt Date: 20130828
  Transmission Date: 20140515
  Serious: Yes (Hospitalization, Other)
  Sender: FDA-Public Use
  Company Number: US-AMGEN-KDL127282

PATIENT
  Age: 62 Year
  Sex: Female

DRUGS (3)
  1. ENBREL [Suspect]
     Indication: RHEUMATOID ARTHRITIS
     Dosage: 50 MG, QWK
     Route: 058
     Dates: start: 20050115
  2. METHOTREXATE [Concomitant]
     Dosage: 25 MG, QWK
     Route: 058
  3. SULFASALAZINE [Concomitant]
     Dosage: UNK UNK, UNK
     Route: 048

REACTIONS (5)
  - Viral infection [Unknown]
  - Pancreas infection [Unknown]
  - Liver disorder [Unknown]
  - Kidney infection [Unknown]
  - Injection site pain [Unknown]
